FAERS Safety Report 5958831-2 (Version None)
Quarter: 2008Q4

REPORT INFORMATION
  Report Type: 
  Country: None (occurrence: None)
  Receive Date: 20081117
  Receipt Date: 20081106
  Transmission Date: 20090506
  Serious: Yes (Death, Hospitalization)
  Sender: FDA-Public Use
  Company Number: WAES0808USA01283

PATIENT
  Age: 65 Year
  Sex: Male
  Weight: 93.8946 kg

DRUGS (34)
  1. CAP VORINOSTAT [Suspect]
     Indication: ACUTE MYELOID LEUKAEMIA
     Dosage: 400 MG/DAILY/PO
     Route: 048
     Dates: start: 20080710, end: 20080723
  2. CAP VORINOSTAT [Suspect]
     Indication: ACUTE MYELOID LEUKAEMIA
     Dosage: 400 MG/DAILY/PO
     Route: 048
     Dates: start: 20080827, end: 20080909
  3. CAP VORINOSTAT [Suspect]
     Indication: ACUTE MYELOID LEUKAEMIA
     Dosage: 400 MG/DAILY/PO
     Route: 048
     Dates: start: 20081001, end: 20081014
  4. DECITABINE [Suspect]
     Indication: ACUTE MYELOID LEUKAEMIA
     Dosage: 44 MG/DAILY/IV
     Route: 042
     Dates: start: 20080710, end: 20080714
  5. DECITABINE [Suspect]
     Indication: ACUTE MYELOID LEUKAEMIA
     Dosage: 44 MG/DAILY/IV
     Route: 042
     Dates: start: 20080827, end: 20080831
  6. DECITABINE [Suspect]
     Indication: ACUTE MYELOID LEUKAEMIA
     Dosage: 44 MG/DAILY/IV
     Route: 042
     Dates: start: 20081001, end: 20081005
  7. ALLEGRA [Concomitant]
  8. ANUSOL SUPPOSITORIES/OINTMENT [Concomitant]
  9. BIOTENE [Concomitant]
  10. COLACE [Concomitant]
  11. FLOMAX (MORNIFLUMATE) [Concomitant]
  12. MAALOX [Concomitant]
  13. OCEAN [Concomitant]
  14. SENOKOT [Concomitant]
  15. ULTRAM [Concomitant]
  16. ZOFRAN [Concomitant]
  17. ACETAMINOPHEN [Concomitant]
  18. ACYCLOVIR [Concomitant]
  19. ALLOPURINOL [Concomitant]
  20. DEXTROSE [Concomitant]
  21. DILTIAZEM HYDROCHLORIDE [Concomitant]
  22. FOLIC ACID [Concomitant]
  23. GENTAMICIN [Concomitant]
  24. HYDROCORTISONE ACETATE [Concomitant]
  25. HYDROMORPHONE HCL [Concomitant]
  26. LEVOFLOXACIN [Concomitant]
  27. METOPROLOL TARTRATE [Concomitant]
  28. MICAFUNGIN [Concomitant]
  29. PSEUDOEPHEDRINE HCL [Concomitant]
  30. SODIUM CHLORIDE 0.9% [Concomitant]
  31. TIGECYCLINE [Concomitant]
  32. PROTONIX [Concomitant]
  33. DIMETHICONE [Concomitant]
  34. DIPHENHYDRAMINE HYDROCHLORIDE [Concomitant]

REACTIONS (14)
  - AGITATION [None]
  - BLOOD CULTURE POSITIVE [None]
  - CONFUSIONAL STATE [None]
  - ESCHERICHIA BACTERAEMIA [None]
  - HEPATOSPLENOMEGALY [None]
  - KLEBSIELLA INFECTION [None]
  - OPPORTUNISTIC INFECTION [None]
  - PNEUMONIA [None]
  - PROCTALGIA [None]
  - PSEUDOMONAL BACTERAEMIA [None]
  - RASH [None]
  - RESPIRATORY FAILURE [None]
  - STAPHYLOCOCCAL INFECTION [None]
  - URINARY RETENTION [None]
